FAERS Safety Report 13517483 (Version 2)
Quarter: 2017Q2

REPORT INFORMATION
  Report Type: Spontaneous
  Country: IN (occurrence: IN)
  Receive Date: 20170505
  Receipt Date: 20170524
  Transmission Date: 20170830
  Serious: Yes (Other)
  Sender: FDA-Public Use
  Company Number: IN-009507513-1704IND012654

PATIENT

DRUGS (1)
  1. RECAGON [Suspect]
     Active Substance: FOLLITROPIN

REACTIONS (2)
  - Ovarian disorder [Unknown]
  - Uterine haemorrhage [Unknown]
